FAERS Safety Report 10748736 (Version 1)
Quarter: 2015Q1

REPORT INFORMATION
  Report Type: Spontaneous
  Country: GB (occurrence: GB)
  Receive Date: 20150129
  Receipt Date: 20150129
  Transmission Date: 20150721
  Serious: Yes (Other)
  Sender: FDA-Public Use
  Company Number: PHHY2015GB008449

PATIENT
  Age: 34 Year
  Sex: Male

DRUGS (6)
  1. TRIAMCINOLONE [Interacting]
     Active Substance: TRIAMCINOLONE
     Indication: MUSCLE DISORDER
  2. RITONAVIR. [Interacting]
     Active Substance: RITONAVIR
     Indication: ASYMPTOMATIC HIV INFECTION
     Route: 065
     Dates: start: 201305
  3. TRIAMCINOLONE [Interacting]
     Active Substance: TRIAMCINOLONE
     Indication: RASH
     Route: 030
  4. TAMSULOSIN [Suspect]
     Active Substance: TAMSULOSIN
     Indication: MICTURITION DISORDER
     Route: 065
  5. TRUVADA [Concomitant]
     Active Substance: EMTRICITABINE\TENOFOVIR DISOPROXIL FUMARATE
     Indication: ASYMPTOMATIC HIV INFECTION
     Route: 065
     Dates: start: 201305
  6. DARUNAVIR [Concomitant]
     Active Substance: DARUNAVIR
     Indication: ASYMPTOMATIC HIV INFECTION
     Route: 065
     Dates: start: 201305

REACTIONS (3)
  - Retrograde ejaculation [Recovering/Resolving]
  - Cushing^s syndrome [Unknown]
  - Drug interaction [Unknown]
